FAERS Safety Report 10787192 (Version 3)
Quarter: 2015Q4

REPORT INFORMATION
  Report Type: Spontaneous
  Country: US (occurrence: US)
  Receive Date: 20150211
  Receipt Date: 20151211
  Transmission Date: 20160304
  Serious: No
  Sender: FDA-Public Use
  Company Number: US-GLAXOSMITHKLINE-US2015GSK016795

PATIENT
  Age: 46 Year
  Sex: Male

DRUGS (5)
  1. LAMICTAL XR [Suspect]
     Active Substance: LAMOTRIGINE
     Indication: EPILEPSY
     Dosage: UNK, U
     Route: 065
  2. LYRICA [Concomitant]
     Active Substance: PREGABALIN
  3. LAMOTRIGINE PROLONGED-RELEASE TABLET [Suspect]
     Active Substance: LAMOTRIGINE
     Indication: SEIZURE
     Dosage: 300 MG, TID
     Route: 048
     Dates: start: 2013, end: 2013
  4. LAMICTAL XR [Suspect]
     Active Substance: LAMOTRIGINE
     Indication: SEIZURE
  5. LEVETIRACETAM. [Concomitant]
     Active Substance: LEVETIRACETAM

REACTIONS (5)
  - Balance disorder [Recovered/Resolved]
  - Drug ineffective [Recovered/Resolved]
  - Road traffic accident [Unknown]
  - Ill-defined disorder [Unknown]
  - Diplopia [Recovered/Resolved]

NARRATIVE: CASE EVENT DATE: 20151002
